FAERS Safety Report 20851763 (Version 1)
Quarter: 2022Q2

REPORT INFORMATION
  Report Type: Report from Study
  Country: US (occurrence: US)
  Receive Date: 20220520
  Receipt Date: 20220520
  Transmission Date: 20220721
  Serious: Yes (Death)
  Sender: FDA-Public Use
  Company Number: US-ABBVIE-22K-163-4402443-00

PATIENT
  Sex: Male

DRUGS (2)
  1. SKYRIZI [Suspect]
     Active Substance: RISANKIZUMAB-RZAA
     Indication: Product used for unknown indication
     Route: 058
  2. COVID-19 VACCINE [Concomitant]
     Indication: COVID-19 immunisation
     Route: 030

REACTIONS (1)
  - Death [Fatal]
